FAERS Safety Report 15651810 (Version 2)
Quarter: 2018Q4

REPORT INFORMATION
  Report Type: Spontaneous
  Country: FR (occurrence: FR)
  Receive Date: 20181123
  Receipt Date: 20181219
  Transmission Date: 20190205
  Serious: Yes (Life-Threatening, Hospitalization)
  Sender: FDA-Public Use
  Company Number: FR-NOVOPROD-632284

PATIENT
  Age: 77 Year
  Sex: Female
  Weight: 68 kg

DRUGS (26)
  1. FURADANTINE [Concomitant]
     Active Substance: NITROFURANTOIN
     Indication: URINARY TRACT INFECTION
     Dosage: 2 DF, TID
     Route: 048
     Dates: start: 20181101, end: 20181108
  2. NOVORAPID [Suspect]
     Active Substance: INSULIN ASPART
     Dosage: 4 U, TID
     Route: 058
  3. HUMALOG [Concomitant]
     Active Substance: INSULIN LISPRO
     Dosage: 4 U, TID
     Route: 065
     Dates: start: 20181104
  4. PARACETAMOL ARROW [Concomitant]
     Active Substance: ACETAMINOPHEN
     Dosage: 1 SACHET MAXIMUM AT ONCE, 4 SACHETS MAXIMUM PER DAY
     Route: 048
     Dates: start: 20181009
  5. LANTUS [Concomitant]
     Active Substance: INSULIN GLARGINE
     Indication: TYPE 1 DIABETES MELLITUS
     Dosage: 18U
     Route: 058
     Dates: start: 20181104
  6. CACIT VITAMINE D3 [Concomitant]
     Active Substance: CALCIUM CARBONATE\CHOLECALCIFEROL
     Dosage: 2 TAB, QD, IN THE MORNING
     Route: 048
     Dates: start: 20181010
  7. INFLUVAC [Concomitant]
     Active Substance: INFLUENZA VIRUS VACCINE TRIVALENT TYPE A+B
     Dosage: 0.5 ML, SINGLE
     Route: 058
     Dates: start: 20181107, end: 20181107
  8. OPTIFIBER [Concomitant]
     Dosage: 1 DF, QD
     Route: 065
     Dates: start: 20181012
  9. APIDRA [Concomitant]
     Active Substance: INSULIN GLULISINE
     Dosage: 4U
     Route: 065
     Dates: start: 20181105
  10. LANTUS [Concomitant]
     Active Substance: INSULIN GLARGINE
     Dosage: 18U
     Route: 058
     Dates: start: 20181106
  11. PERINDOPRIL TERT-BUTYLAMINE [Concomitant]
     Active Substance: PERINDOPRIL ERBUMINE
     Dosage: 1 DF, QD, IN THE MORNING
     Route: 048
     Dates: start: 20181010
  12. VITAMIN D3 [Concomitant]
     Active Substance: CHOLECALCIFEROL
     Dosage: 1 DF, QD
     Route: 048
  13. CYMBALTA [Concomitant]
     Active Substance: DULOXETINE HYDROCHLORIDE
     Indication: DIABETIC NEUROPATHY
  14. NOVORAPID [Suspect]
     Active Substance: INSULIN ASPART
     Dosage: 5 U AT AT 6:00 P.M, AT 8:00 P.M, AT AT 9:15 P.M, 4 U AT 12:00 A.M
     Route: 058
     Dates: start: 20181106
  15. APIDRA [Concomitant]
     Active Substance: INSULIN GLULISINE
     Dosage: 5U
     Route: 065
     Dates: start: 20181105
  16. LANTUS [Concomitant]
     Active Substance: INSULIN GLARGINE
     Dosage: 18U
     Route: 058
     Dates: start: 20181105
  17. DULOXETINE. [Concomitant]
     Active Substance: DULOXETINE
     Dosage: 1 CAPS, IN THE EVENING, INTERACTION WITH CIFLOX
     Route: 065
     Dates: start: 20181009
  18. MACROGOL [Concomitant]
     Active Substance: POLYETHYLENE GLYCOLS
     Dosage: 2 DF, QD, IN THE MORNING
     Route: 048
     Dates: start: 20181031
  19. APIDRA [Concomitant]
     Active Substance: INSULIN GLULISINE
     Indication: TYPE 1 DIABETES MELLITUS
     Dosage: UNK
     Route: 065
  20. PRADAXA [Concomitant]
     Active Substance: DABIGATRAN ETEXILATE MESYLATE
     Dosage: 1 DF, QD, IN THE MORNING
     Route: 048
     Dates: start: 20181009
  21. GLUCOSE [Concomitant]
     Active Substance: DEXTROSE
     Dosage: UNK
     Route: 065
     Dates: start: 20181106
  22. NOVORAPID [Suspect]
     Active Substance: INSULIN ASPART
     Indication: TYPE 1 DIABETES MELLITUS
     Dosage: 4 U, TID
     Route: 058
     Dates: start: 20181102
  23. NOVORAPID [Suspect]
     Active Substance: INSULIN ASPART
     Dosage: INJECTION MADE AFTER MEAL
     Route: 058
     Dates: start: 20181104
  24. HUMALOG [Concomitant]
     Active Substance: INSULIN LISPRO
     Indication: TYPE 1 DIABETES MELLITUS
     Dosage: 4U
     Route: 065
     Dates: start: 20181103
  25. ATORVASTATINE                      /01326101/ [Concomitant]
     Active Substance: ATORVASTATIN
     Dosage: 20 MG, QD, IN THE MORNING
     Route: 048
     Dates: start: 20181010
  26. SERESTA [Concomitant]
     Active Substance: OXAZEPAM
     Dosage: IN CASE OF ANXIETY : 0,5 CAPSULE AT ONCE, 1 CASPULE MAXIMUM PER DAY
     Route: 048
     Dates: start: 20181009

REACTIONS (7)
  - Angina pectoris [Unknown]
  - Blood pressure increased [Unknown]
  - Hypotension [Recovering/Resolving]
  - Atrial fibrillation [Unknown]
  - Product quality issue [Unknown]
  - Diabetic ketosis [Unknown]
  - Hyperglycaemia [Not Recovered/Not Resolved]

NARRATIVE: CASE EVENT DATE: 20181106
